FAERS Safety Report 8869028 (Version 1)
Quarter: 2012Q4

REPORT INFORMATION
  Report Type: Spontaneous
  Country: DK (occurrence: None)
  Receive Date: 20121022
  Receipt Date: 20121022
  Transmission Date: 20130627
  Serious: Yes (Other)
  Sender: FDA-Public Use
  Company Number: 2012MA012432

PATIENT
  Age: 49 Year
  Sex: Female

DRUGS (1)
  1. DOXYCYCLINE HYCLATE [Suspect]
     Dosage: ; UNK ; UNK

REACTIONS (3)
  - Fatigue [None]
  - Malaise [None]
  - Polycythaemia [None]
